FAERS Safety Report 6443091-9 (Version None)
Quarter: 2009Q4

REPORT INFORMATION
  Report Type: 
  Country: None (occurrence: None)
  Receive Date: 20091117
  Receipt Date: 20091109
  Transmission Date: 20100525
  Serious: Yes (Other)
  Sender: FDA-Public Use
  Company Number: GB-ASTRAZENECA-2009SE25466

PATIENT
  Age: 59 Year
  Sex: Male

DRUGS (8)
  1. LISINOPRIL [Suspect]
  2. ACOMPLIA [Suspect]
     Indication: WEIGHT DECREASED
     Route: 048
     Dates: start: 20070116
  3. METFORMIN HCL [Suspect]
     Dates: start: 19960101
  4. ASPIRIN [Concomitant]
  5. FUROSEMIDE [Concomitant]
  6. GLICLAZIDE [Concomitant]
     Indication: DIABETES MELLITUS
  7. PIOGLITAZONE [Concomitant]
     Indication: DIABETES MELLITUS
  8. SIMVASTATIN [Concomitant]
     Indication: HYPERCHOLESTEROLAEMIA

REACTIONS (1)
  - RENAL IMPAIRMENT [None]
